FAERS Safety Report 20530749 (Version 8)
Quarter: 2022Q3

REPORT INFORMATION
  Report Type: Report from Study
  Country: PA (occurrence: PA)
  Receive Date: 20220301
  Receipt Date: 20220922
  Transmission Date: 20221026
  Serious: Yes (Other)
  Sender: FDA-Public Use
  Company Number: PA-NOVARTISPH-NVSC2022PA040766

PATIENT
  Age: 69 Year
  Sex: Female

DRUGS (10)
  1. KISQALI [Suspect]
     Active Substance: RIBOCICLIB
     Indication: Breast cancer metastatic
     Dosage: 600 MG, QD
     Route: 048
     Dates: start: 202201
  2. KISQALI [Suspect]
     Active Substance: RIBOCICLIB
     Dosage: 600 MG, QD
     Route: 048
     Dates: start: 20220212
  3. KISQALI [Suspect]
     Active Substance: RIBOCICLIB
     Dosage: 600 MG, QD (3 TABLET OF 200 MG)
     Route: 048
     Dates: start: 202203
  4. VITAMIN B COMPLEX [Concomitant]
     Active Substance: CYANOCOBALAMIN\DEXPANTHENOL\NIACINAMIDE\PYRIDOXINE HYDROCHLORIDE\RIBOFLAVIN 5^-PHOSPHATE SODIUM\THIA
     Indication: Decreased immune responsiveness
     Dosage: UNK
     Route: 065
  5. CALCIUM [Concomitant]
     Active Substance: CALCIUM
     Indication: Product used for unknown indication
     Dosage: UNK
     Route: 065
  6. FOLIC ACID [Concomitant]
     Active Substance: FOLIC ACID
     Indication: Decreased immune responsiveness
     Dosage: UNK
     Route: 065
  7. METFORMIN [Concomitant]
     Active Substance: METFORMIN HYDROCHLORIDE
     Indication: Diabetes mellitus
     Dosage: 2 DOSAGE FORM, QD
     Route: 048
  8. ASPIRIN [Concomitant]
     Active Substance: ASPIRIN
     Indication: Atrioventricular block
     Dosage: 1 DOSAGE FORM, QD
     Route: 065
  9. VITAMIN D [Concomitant]
     Active Substance: VITAMIN D NOS
     Indication: Decreased immune responsiveness
     Dosage: UNK
     Route: 065
  10. INDAPAMIDE [Concomitant]
     Active Substance: INDAPAMIDE
     Indication: Atrioventricular block
     Dosage: 1 DOSAGE FORM, QD
     Route: 065

REACTIONS (25)
  - Tumour marker increased [Unknown]
  - Metastases to lung [Unknown]
  - Discomfort [Recovered/Resolved]
  - Decreased immune responsiveness [Unknown]
  - Muscle spasms [Unknown]
  - Feeling abnormal [Unknown]
  - Eating disorder [Unknown]
  - Injection site discomfort [Unknown]
  - Abdominal discomfort [Unknown]
  - Anxiety [Recovered/Resolved]
  - COVID-19 [Unknown]
  - Weight decreased [Unknown]
  - Blood glucose abnormal [Recovering/Resolving]
  - Pain in extremity [Unknown]
  - Chills [Unknown]
  - Arthralgia [Unknown]
  - Nausea [Recovered/Resolved]
  - Asthenia [Recovered/Resolved]
  - Vomiting [Recovered/Resolved]
  - Headache [Recovered/Resolved]
  - Diarrhoea [Recovered/Resolved]
  - Dizziness [Recovered/Resolved]
  - Abdominal pain upper [Recovered/Resolved]
  - Haemoglobin decreased [Unknown]
  - Decreased appetite [Recovered/Resolved]

NARRATIVE: CASE EVENT DATE: 20220101
